FAERS Safety Report 23693977 (Version 1)
Quarter: 2024Q2

REPORT INFORMATION
  Report Type: Spontaneous
  Country: US (occurrence: US)
  Receive Date: 20240401
  Receipt Date: 20240401
  Transmission Date: 20240716
  Serious: Yes (Other)
  Sender: FDA-Public Use
  Company Number: US-MLMSERVICE-20240304-4863795-1

PATIENT
  Age: 1 Year
  Sex: Female
  Weight: 12.4 kg

DRUGS (20)
  1. RIBAVIRIN [Suspect]
     Active Substance: RIBAVIRIN
     Indication: Antibody-dependent enhancement
     Dosage: DAY 1: 33MG/KG/LOADING DOSE (ON DAY (V): 205)
     Route: 042
  2. RIBAVIRIN [Suspect]
     Active Substance: RIBAVIRIN
     Indication: Measles
     Dosage: DAY 1 TO 5: 16MG/KG/DOSE Q6 HOURS FOR 16 DOSES
     Route: 042
  3. RIBAVIRIN [Suspect]
     Active Substance: RIBAVIRIN
     Dosage: FROM DAY 6 ONWARDS: 8MG/KG/DOSE Q8H
     Route: 042
  4. INTERFERON ALFA NOS [Suspect]
     Active Substance: INTERFERON ALFA-2A OR INTERFERON ALFA-2B
     Indication: Antibody-dependent enhancement
     Dosage: 100,000 UNITS/M2 IT ON DAY 1
     Route: 037
  5. INTERFERON ALFA NOS [Suspect]
     Active Substance: INTERFERON ALFA-2A OR INTERFERON ALFA-2B
     Indication: Measles
     Dosage: 200,000 UNITS/M2 IT ON DAY 2
     Route: 037
  6. INTERFERON ALFA NOS [Suspect]
     Active Substance: INTERFERON ALFA-2A OR INTERFERON ALFA-2B
     Dosage: 300,000 UNITS/M2 IT ON DAY 3
     Route: 037
  7. INTERFERON ALFA NOS [Suspect]
     Active Substance: INTERFERON ALFA-2A OR INTERFERON ALFA-2B
     Dosage: 400,000 UNITS/M2 IT IT ON DAY 4
     Route: 037
  8. INTERFERON ALFA NOS [Suspect]
     Active Substance: INTERFERON ALFA-2A OR INTERFERON ALFA-2B
     Dosage: 500,000 UNITS/M2 IT ON DAY 5
     Route: 037
  9. INTERFERON ALFA NOS [Suspect]
     Active Substance: INTERFERON ALFA-2A OR INTERFERON ALFA-2B
     Dosage: FROM DAY 8 ONWARDS AT A DOSE OF 1,000,000 UNITS/M2 IT ADMINISTERED TWICE WEEKLY
     Route: 037
  10. INOSINE PRANOBEX [Suspect]
     Active Substance: INOSINE PRANOBEX
     Indication: Antibody-dependent enhancement
     Dosage: ENTERAL ON DAY(V) 211
     Route: 048
  11. INOSINE PRANOBEX [Suspect]
     Active Substance: INOSINE PRANOBEX
     Indication: Measles
  12. HUMAN IMMUNOGLOBULIN G [Concomitant]
     Active Substance: HUMAN IMMUNOGLOBULIN G
     Indication: Hypogammaglobulinaemia
     Dosage: DAY(V) 34
     Route: 042
  13. METHYLPREDNISOLONE [Concomitant]
     Active Substance: METHYLPREDNISOLONE
     Indication: Drug eruption
     Dosage: DAY(V) 34
     Route: 065
  14. BUSULFAN [Concomitant]
     Active Substance: BUSULFAN
     Indication: Leukaemia cutis
     Route: 065
  15. THIOTEPA [Concomitant]
     Active Substance: THIOTEPA
     Indication: Leukaemia cutis
     Route: 065
  16. CYCLOPHOSPHAMIDE [Concomitant]
     Active Substance: CYCLOPHOSPHAMIDE
     Indication: Leukaemia cutis
     Route: 065
  17. MELPHALAN [Concomitant]
     Active Substance: MELPHALAN
     Indication: Leukaemia cutis
     Route: 065
  18. RITUXIMAB [Concomitant]
     Active Substance: RITUXIMAB
     Indication: Leukaemia cutis
     Route: 065
  19. THYMOCYTE IMMUNE GLOBULIN NOS [Concomitant]
     Active Substance: THYMOCYTE IMMUNE GLOBULIN NOS
     Indication: Leukaemia cutis
     Route: 065
  20. RIBAVIRIN [Concomitant]
     Active Substance: RIBAVIRIN
     Indication: Antibody-dependent enhancement
     Dosage: ETERNAL
     Route: 048

REACTIONS (2)
  - Neutropenia [Not Recovered/Not Resolved]
  - Therapy non-responder [Unknown]
